FAERS Safety Report 21985589 (Version 3)
Quarter: 2023Q1

REPORT INFORMATION
  Report Type: Report from Study
  Country: US (occurrence: US)
  Receive Date: 20230213
  Receipt Date: 20230314
  Transmission Date: 20230418
  Serious: Yes (Hospitalization)
  Sender: FDA-Public Use
  Company Number: US-JNJFOC-20230208869

PATIENT
  Age: 49 Year
  Sex: Male
  Weight: 87.2 kg

DRUGS (9)
  1. TECLISTAMAB [Suspect]
     Active Substance: TECLISTAMAB
     Indication: Plasma cell myeloma
     Route: 058
     Dates: start: 20220903, end: 20220906
  2. TECLISTAMAB [Suspect]
     Active Substance: TECLISTAMAB
     Dosage: WITH MOST RECENT DOSE ON 01-DEC-2022
     Route: 058
     Dates: start: 20220910
  3. DARATUMUMAB [Suspect]
     Active Substance: DARATUMUMAB
     Indication: Plasma cell myeloma
     Dosage: WITH MOST RECENT DOSE ON 01-DEC-2022
     Route: 058
     Dates: start: 20220902
  4. ASPIRIN [Concomitant]
     Active Substance: ASPIRIN
     Indication: Thrombosis prophylaxis
     Route: 048
     Dates: start: 20210101
  5. ACYCLOVIR [Concomitant]
     Active Substance: ACYCLOVIR
     Indication: Antiviral prophylaxis
     Route: 048
     Dates: start: 20220715
  6. BACTRIM [Concomitant]
     Active Substance: SULFAMETHOXAZOLE\TRIMETHOPRIM
     Indication: Antifungal prophylaxis
     Route: 048
     Dates: start: 20220903
  7. DIPHENHYDRAMINE [Concomitant]
     Active Substance: DIPHENHYDRAMINE
     Indication: Injection site reaction
     Route: 048
     Dates: start: 20220912
  8. HYDROCORTISONE [Concomitant]
     Active Substance: HYDROCORTISONE
     Indication: Injection site reaction
     Route: 062
     Dates: start: 20220914
  9. GUAIFENESIN [Concomitant]
     Active Substance: GUAIFENESIN
     Indication: COVID-19
     Route: 048
     Dates: start: 20221220

REACTIONS (1)
  - Febrile neutropenia [Recovered/Resolved]

NARRATIVE: CASE EVENT DATE: 20230201
